FAERS Safety Report 10161003 (Version 1)
Quarter: 2014Q2

REPORT INFORMATION
  Report Type: Spontaneous
  Country: US (occurrence: US)
  Receive Date: 20140508
  Receipt Date: 20140508
  Transmission Date: 20141212
  Serious: No
  Sender: FDA-Public Use
  Company Number: US-PFIZER INC-2014124431

PATIENT
  Age: 54 Year
  Sex: Female
  Weight: 68.03 kg

DRUGS (2)
  1. NEURONTIN [Suspect]
     Indication: NERVE INJURY
     Dosage: 300 MG, 1X/DAY
     Route: 048
     Dates: start: 20130819, end: 201310
  2. XANAX [Concomitant]
     Indication: ANXIETY DISORDER
     Dosage: 1 MG, 2X/DAY

REACTIONS (2)
  - Chronic obstructive pulmonary disease [Unknown]
  - Drug ineffective [Unknown]
